FAERS Safety Report 12975129 (Version 1)
Quarter: 2016Q4

REPORT INFORMATION
  Report Type: Spontaneous
  Country: US (occurrence: US)
  Receive Date: 20161125
  Receipt Date: 20161125
  Transmission Date: 20170207
  Serious: Yes (Hospitalization)
  Sender: FDA-Public Use
  Company Number: US-JNJFOC-20161116252

PATIENT
  Age: 60 Year
  Sex: Male
  Weight: 78.47 kg

DRUGS (6)
  1. XARELTO [Suspect]
     Active Substance: RIVAROXABAN
     Indication: THROMBOSIS PROPHYLAXIS
     Route: 048
     Dates: start: 20150422, end: 20160126
  2. XARELTO [Suspect]
     Active Substance: RIVAROXABAN
     Indication: CEREBROVASCULAR ACCIDENT PROPHYLAXIS
     Route: 048
     Dates: start: 20150422, end: 20160126
  3. XARELTO [Suspect]
     Active Substance: RIVAROXABAN
     Indication: ATRIAL FIBRILLATION
     Route: 048
     Dates: start: 20150422, end: 20160126
  4. TYLENOL [Suspect]
     Active Substance: ACETAMINOPHEN
     Route: 048
  5. TYLENOL [Suspect]
     Active Substance: ACETAMINOPHEN
     Indication: PAIN
     Route: 048
  6. ASPIRIN. [Suspect]
     Active Substance: ASPIRIN
     Indication: PAIN
     Route: 048

REACTIONS (4)
  - Inappropriate schedule of drug administration [Unknown]
  - Treatment noncompliance [Unknown]
  - Off label use [Unknown]
  - Haematochezia [Unknown]

NARRATIVE: CASE EVENT DATE: 20150422
